FAERS Safety Report 5420864-2 (Version None)
Quarter: 2007Q3

REPORT INFORMATION
  Report Type: 
  Country: None (occurrence: None)
  Receive Date: 20070816
  Receipt Date: 20070801
  Transmission Date: 20080115
  Serious: Yes (Hospitalization)
  Sender: FDA-Public Use
  Company Number: DSA_30299_2007

PATIENT
  Age: 81 Year
  Sex: Female

DRUGS (10)
  1. RENIVACE (RENIVACE - ENALAPRIL MALEATE) 5 MG [Suspect]
     Indication: HYPERTENSION
     Dosage: (5 MG ORAL)
     Route: 048
     Dates: start: 20040101, end: 20070101
  2. BONALON /01220301/ (BONALON - ALENDRONATE SODIUM HYDRATE) [Suspect]
     Indication: DRUG USE FOR UNKNOWN INDICATION
     Dosage: (5 MG QD ORAL)
     Route: 048
     Dates: start: 20040101, end: 20070101
  3. ASPARA-CA (ASPARA-CA  - CALCIUM L-ASPARTATE) [Suspect]
     Indication: DRUG USE FOR UNKNOWN INDICATION
     Dosage: (400 MG QD ORAL)
     Route: 048
     Dates: start: 20040101, end: 20070101
  4. SENNA-MINT WAF [Suspect]
     Indication: DRUG USE FOR UNKNOWN INDICATION
     Dosage: (80 MG QD ORAL)
     Route: 048
     Dates: start: 20040101, end: 20070101
  5. ASPIRIN [Suspect]
     Indication: DRUG USE FOR UNKNOWN INDICATION
     Dosage: (100 MG QD ORAL)
     Route: 048
     Dates: start: 20040101, end: 20070101
  6. DEKASOFT (DEKASOFT - UBIDECARENONE) [Suspect]
     Indication: DRUG USE FOR UNKNOWN INDICATION
     Dosage: (30 MG QD ORAL)
     Route: 048
     Dates: start: 20040101, end: 20070101
  7. URSO 250 [Suspect]
     Indication: DRUG USE FOR UNKNOWN INDICATION
     Dosage: (300 MG QD ORAL)
     Route: 049
     Dates: start: 20040101, end: 20070101
  8. REBAMIPIDE (MUCOSTA - REBAMIPIDE) [Suspect]
     Indication: DRUG USE FOR UNKNOWN INDICATION
     Dosage: (30 MG QD ORAL)
     Route: 048
     Dates: start: 20040101, end: 20070101
  9. OMEPRAL (OMEPRAL - OMEPRAZOLE) [Suspect]
     Indication: DRUG USE FOR UNKNOWN INDICATION
     Dosage: (20 MG QD ORAL)
     Route: 048
     Dates: start: 20040101, end: 20070101
  10. KAKKON-TO [Concomitant]

REACTIONS (4)
  - ASTHENIA [None]
  - CONDITION AGGRAVATED [None]
  - FAECAL INCONTINENCE [None]
  - INCONTINENCE [None]
